FAERS Safety Report 6643290-7 (Version None)
Quarter: 2010Q1

REPORT INFORMATION
  Report Type: 
  Country: None (occurrence: None)
  Receive Date: 20100319
  Receipt Date: 20100311
  Transmission Date: 20100710
  Serious: Yes (Hospitalization)
  Sender: FDA-Public Use
  Company Number: GXKR2010US02962

PATIENT
  Age: 82 Year
  Sex: Female
  Weight: 64 kg

DRUGS (1)
  1. SOTALOL (NGX) [Suspect]
     Indication: SINUS RHYTHM
     Dosage: 80 MG, UNK
     Route: 065

REACTIONS (1)
  - STRESS CARDIOMYOPATHY [None]
